FAERS Safety Report 9951676 (Version 2)
Quarter: 2014Q1

REPORT INFORMATION
  Report Type: Spontaneous
  Country: PR (occurrence: PR)
  Receive Date: 20140304
  Receipt Date: 20140304
  Transmission Date: 20141002
  Serious: No
  Sender: FDA-Public Use
  Company Number: PR-ABBVIE-13P-131-1043765-00

PATIENT
  Age: 59 Year
  Sex: Female
  Weight: 150 kg

DRUGS (6)
  1. HUMIRA [Suspect]
     Indication: RHEUMATOID ARTHRITIS
     Route: 058
     Dates: start: 2011, end: 20130130
  2. HUMIRA [Suspect]
     Route: 058
     Dates: start: 201302
  3. DEPAKOTE [Concomitant]
     Indication: EPILEPSY
     Route: 048
  4. LAMICTAL [Concomitant]
     Indication: EPILEPSY
     Route: 048
  5. UNKNOWN MEDICATION [Concomitant]
     Indication: HYPERCHOLESTEROLAEMIA
  6. UNKNOWN MEDICATION [Concomitant]
     Indication: PRODUCT USED FOR UNKNOWN INDICATION

REACTIONS (1)
  - Nasopharyngitis [Recovered/Resolved]
